FAERS Safety Report 21248061 (Version 4)
Quarter: 2023Q1

REPORT INFORMATION
  Report Type: Report from Study
  Country: US (occurrence: US)
  Receive Date: 20220824
  Receipt Date: 20230112
  Transmission Date: 20230418
  Serious: No
  Sender: FDA-Public Use
  Company Number: US-002147023-NVSC2022US189371

PATIENT
  Sex: Male

DRUGS (2)
  1. TASIGNA [Suspect]
     Active Substance: NILOTINIB
     Indication: Philadelphia positive chronic myeloid leukaemia
     Dosage: 150 MG, QID (FOUR TIMES A DAY)
     Route: 048
     Dates: start: 20191006
  2. TASIGNA [Suspect]
     Active Substance: NILOTINIB
     Indication: Remission not achieved

REACTIONS (1)
  - Product dose omission issue [Unknown]
